FAERS Safety Report 6809708-1 (Version None)
Quarter: 2010Q2

REPORT INFORMATION
  Report Type: 
  Country: None (occurrence: None)
  Receive Date: 20100630
  Receipt Date: 20070402
  Transmission Date: 20101027
  Serious: No
  Sender: FDA-Public Use
  Company Number: US-PFIZER INC-2007029206

PATIENT
  Age: 84 Year
  Sex: Male
  Weight: 95.25 kg

DRUGS (6)
  1. SPIRONOLACTONE [Suspect]
  2. PROCARDIA XL [Concomitant]
  3. LASIX [Concomitant]
  4. TAPAZOL [Concomitant]
  5. ACETYLSALICYLIC ACID [Concomitant]
  6. MULTI-VITAMINS [Concomitant]

REACTIONS (1)
  - SOMNAMBULISM [None]
